FAERS Safety Report 8270144-5 (Version None)
Quarter: 2012Q2

REPORT INFORMATION
  Report Type: 
  Country: None (occurrence: None)
  Receive Date: 20120410
  Receipt Date: 20120402
  Transmission Date: 20120825
  Serious: Yes (Hospitalization)
  Sender: FDA-Public Use
  Company Number: PHEH2012US005922

PATIENT
  Sex: Male
  Weight: 62.5 kg

DRUGS (4)
  1. FOLIC ACID [Concomitant]
  2. ASMANEX TWISTHALER [Concomitant]
  3. EXJADE [Suspect]
     Indication: IRON OVERLOAD
     Dosage: 1500 MG, QD
     Route: 048
  4. ALBUTEROL [Concomitant]

REACTIONS (2)
  - PNEUMONIA PRIMARY ATYPICAL [None]
  - PYREXIA [None]
